FAERS Safety Report 14422211 (Version 1)
Quarter: 2018Q1

REPORT INFORMATION
  Report Type: Spontaneous
  Country: US (occurrence: US)
  Receive Date: 20180123
  Receipt Date: 20180123
  Transmission Date: 20180509
  Serious: No
  Sender: FDA-Public Use
  Company Number: US-DRREDDYS-USA/USA/17/0094295

PATIENT
  Age: 66 Year
  Sex: Female
  Weight: 83.91 kg

DRUGS (12)
  1. KLONOPIN [Concomitant]
     Active Substance: CLONAZEPAM
     Indication: BENIGN NEOPLASM
     Dosage: STARTED AT LEAST 10 YEARS AGO
     Route: 065
  2. HYDROCHLOROTHIAZIDE. [Concomitant]
     Active Substance: HYDROCHLOROTHIAZIDE
     Indication: HYPERTENSION
     Dosage: STARTED AT LEAST 10 YEARS AGO
     Route: 065
  3. LEVOCETRIZINE [Concomitant]
     Active Substance: LEVOCETIRIZINE
     Indication: AUTOIMMUNE DISORDER
     Dosage: STARTED AT LEAST 10 YEARS AGO
     Route: 065
  4. POTASSIUM [Concomitant]
     Active Substance: POTASSIUM
     Indication: BLOOD POTASSIUM DECREASED
     Dosage: STARTED 3 YEARS AGO: 10 (UNIT UNKNOWN)
     Route: 065
  5. ATORVASTATIN [Concomitant]
     Active Substance: ATORVASTATIN
     Indication: BLOOD CHOLESTEROL INCREASED
     Route: 065
  6. PRIMIDONE. [Concomitant]
     Active Substance: PRIMIDONE
     Indication: BENIGN NEOPLASM
     Dosage: STARTED AT LEAST 10 YEARS AGO
     Route: 065
  7. ADVAIR HFA [Concomitant]
     Active Substance: FLUTICASONE PROPIONATE\SALMETEROL XINAFOATE
     Indication: ASTHMA
     Dosage: 250-50MCG INHALER TWICE A DAY, STARTED AT LEAST 10 YEARS AGO
     Route: 065
  8. ESOMEPRAZOLE [Suspect]
     Active Substance: ESOMEPRAZOLE
     Indication: GASTROOESOPHAGEAL REFLUX DISEASE
     Dates: start: 2017
  9. AMLODIPINE [Concomitant]
     Active Substance: AMLODIPINE BESYLATE
     Indication: HYPERTENSION
     Dosage: STARTED 6 MONTHS AGO
     Route: 065
  10. SINGULAIR [Concomitant]
     Active Substance: MONTELUKAST SODIUM
     Indication: ASTHMA
     Dosage: STARTED AT LEAST 10 YEARS AGO
     Route: 065
  11. BYETTA [Concomitant]
     Active Substance: EXENATIDE
     Indication: DIABETES MELLITUS
     Dosage: STARTED AT LEAST 10 YEARS AGO
     Route: 065
  12. NAPROXEN. [Concomitant]
     Active Substance: NAPROXEN
     Indication: ARTHRALGIA
     Dosage: STARTED ABOUT A 1 YEAR AGO
     Route: 065

REACTIONS (2)
  - Drug ineffective [Not Recovered/Not Resolved]
  - Nausea [Not Recovered/Not Resolved]

NARRATIVE: CASE EVENT DATE: 2017
